FAERS Safety Report 7315363-7 (Version None)
Quarter: 2011Q1

REPORT INFORMATION
  Report Type: 
  Country: None (occurrence: None)
  Receive Date: 20110225
  Receipt Date: 20110222
  Transmission Date: 20110831
  Serious: Yes (Death, Life-Threatening, Hospitalization, Disabling)
  Sender: FDA-Public Use
  Company Number: US-EISAI INC-E7389-01157-CLI-US

PATIENT
  Sex: Female

DRUGS (25)
  1. VITAMIN B6 [Concomitant]
     Route: 048
     Dates: start: 20100301
  2. TYLENOL [Concomitant]
     Route: 048
     Dates: start: 20100910
  3. FOLIC ACID [Concomitant]
     Route: 048
     Dates: start: 20100805
  4. FEXOFENADINE [Concomitant]
     Route: 048
     Dates: start: 20070101
  5. METOPROLOL TARTRATE [Concomitant]
     Indication: HYPERTENSION
     Route: 048
     Dates: start: 20090724
  6. OMEPRAZOLE [Concomitant]
     Route: 048
     Dates: start: 19890101
  7. TRIAMCINOLONE ACETONIDE [Concomitant]
     Route: 048
     Dates: start: 20090801
  8. MULTI-VITAMIN [Concomitant]
     Route: 048
     Dates: start: 20000101
  9. E7389 (BOLD) [Suspect]
     Indication: NON-SMALL CELL LUNG CANCER
     Route: 041
     Dates: start: 20100813
  10. IBUPROFEN [Concomitant]
     Route: 048
     Dates: start: 20090903
  11. TESALON PERLES [Concomitant]
     Route: 048
     Dates: start: 20110113
  12. CALCIUM [Concomitant]
     Indication: OSTEOPENIA
     Route: 048
     Dates: start: 20050101
  13. VITAMIN D [Concomitant]
     Indication: OSTEOPENIA
     Route: 048
     Dates: start: 20050101
  14. SIMVASTATIN [Concomitant]
     Indication: HYPERCHOLESTEROLAEMIA
     Route: 048
     Dates: start: 20030101
  15. DETROL LA [Concomitant]
     Indication: INCONTINENCE
     Route: 048
     Dates: start: 20010101
  16. FRAGMIN [Concomitant]
     Indication: PULMONARY EMBOLISM
     Route: 058
     Dates: start: 20110121, end: 20110209
  17. FISH OIL [Concomitant]
     Route: 048
     Dates: start: 20000101
  18. ALPRAZOLAM [Concomitant]
     Indication: ANXIETY
     Route: 048
     Dates: start: 20100506
  19. ZOLOFT [Concomitant]
     Indication: DEPRESSION
     Route: 048
     Dates: start: 20100301
  20. VICODIN [Concomitant]
     Indication: PAIN
     Route: 048
     Dates: start: 20090821
  21. ASCORBIC ACID [Concomitant]
     Route: 048
     Dates: start: 20050101
  22. DEXAMETHASONE [Concomitant]
     Route: 048
     Dates: start: 20100812
  23. PEMETREXED [Concomitant]
     Indication: NON-SMALL CELL LUNG CANCER
     Route: 041
     Dates: start: 20100813
  24. ATIVAN [Concomitant]
     Indication: ANXIETY
     Route: 048
     Dates: start: 20090811
  25. ASPIRIN [Concomitant]
     Route: 048
     Dates: start: 19990101

REACTIONS (5)
  - CEREBRAL INFARCTION [None]
  - LOSS OF CONSCIOUSNESS [None]
  - CHEST PAIN [None]
  - PULMONARY EMBOLISM [None]
  - HYPOXIA [None]
